FAERS Safety Report 14706468 (Version 1)
Quarter: 2018Q2

REPORT INFORMATION
  Report Type: Spontaneous
  Country: US (occurrence: US)
  Receive Date: 20180402
  Receipt Date: 20180402
  Transmission Date: 20180711
  Serious: No
  Sender: FDA-Public Use
  Company Number: US-JNJFOC-20180322741

PATIENT

DRUGS (2)
  1. MOTRIN IB [Suspect]
     Active Substance: IBUPROFEN
     Indication: MIGRAINE
     Route: 065
  2. MOTRIN IB [Suspect]
     Active Substance: IBUPROFEN
     Route: 065

REACTIONS (1)
  - Drug effect incomplete [Unknown]
